FAERS Safety Report 18699691 (Version 2)
Quarter: 2021Q1

REPORT INFORMATION
  Report Type: Report from Study
  Country: CA (occurrence: CA)
  Receive Date: 20210104
  Receipt Date: 20210128
  Transmission Date: 20210419
  Serious: Yes (Other)
  Sender: FDA-Public Use
  Company Number: CA-CHIESI-2019AP026656

PATIENT
  Sex: Female
  Weight: 52 kg

DRUGS (8)
  1. DEFERIPRONE [Suspect]
     Active Substance: DEFERIPRONE
     Dosage: 58 MILLIGRAM/KILOGRAM, QD
     Route: 048
     Dates: start: 20160219
  2. HYDROCHLOROTHIAZIDE W/RAMIPRIL [Concomitant]
     Active Substance: HYDROCHLOROTHIAZIDE\RAMIPRIL
     Dosage: 100 MILLIGRAM, QD
     Route: 065
  3. DEFERIPRONE [Suspect]
     Active Substance: DEFERIPRONE
     Dosage: 58 MILLIGRAM/KILOGRAM, QD
     Route: 048
     Dates: start: 2019
  4. HYDROCHLOROTHIAZIDE W/RAMIPRIL [Concomitant]
     Active Substance: HYDROCHLOROTHIAZIDE\RAMIPRIL
     Indication: PRODUCT USED FOR UNKNOWN INDICATION
     Dosage: 1000 MILLIGRAM, UNK
     Route: 065
  5. DEFERIPRONE [Suspect]
     Active Substance: DEFERIPRONE
     Dosage: UNK
     Route: 065
     Dates: start: 2013, end: 2015
  6. DEFERIPRONE [Suspect]
     Active Substance: DEFERIPRONE
     Dosage: 67 MILLIGRAM/KILOGRAM, QD
     Route: 048
     Dates: start: 20190515, end: 2019
  7. FOLIC ACID. [Concomitant]
     Active Substance: FOLIC ACID
     Indication: PRODUCT USED FOR UNKNOWN INDICATION
     Dosage: 5 MILLIGRAM, UNK
     Route: 065
  8. DEFERIPRONE [Suspect]
     Active Substance: DEFERIPRONE
     Dosage: 26 MILLIGRAM/KILOGRAM, TID (1500, 1500 AND 1000 MG)
     Route: 048
     Dates: start: 20140615

REACTIONS (9)
  - Chills [Unknown]
  - Urinary tract infection [Unknown]
  - Disability [Unknown]
  - Pain [Unknown]
  - Infection [Unknown]
  - Sickle cell anaemia with crisis [Unknown]
  - Nausea [Unknown]
  - Malaise [Unknown]
  - Gait inability [Unknown]
